FAERS Safety Report 16910277 (Version 3)
Quarter: 2019Q4

REPORT INFORMATION
  Report Type: Report from Study
  Country: ZA (occurrence: ZA)
  Receive Date: 20191011
  Receipt Date: 20191206
  Transmission Date: 20200122
  Serious: Yes (Hospitalization)
  Sender: FDA-Public Use
  Company Number: ZA-REGENERON PHARMACEUTICALS, INC.-2019-47443

PATIENT

DRUGS (1)
  1. EYLEA [Suspect]
     Active Substance: AFLIBERCEPT
     Indication: AGE-RELATED MACULAR DEGENERATION
     Dosage: UNK, LAST DOSE PRIOR THE EVENT WAS RECEIVED ON 07-JUN-2019
     Route: 031
     Dates: start: 20180823, end: 20190607

REACTIONS (2)
  - Malaise [Unknown]
  - Hospitalisation [Recovered/Resolved]
